FAERS Safety Report 8557272-1 (Version None)
Quarter: 2012Q3

REPORT INFORMATION
  Report Type: 
  Country: None (occurrence: None)
  Receive Date: 20120801
  Receipt Date: 20120726
  Transmission Date: 20120928
  Serious: Yes (Other)
  Sender: FDA-Public Use
  Company Number: US-PFIZER INC-2012181785

PATIENT
  Sex: Male
  Weight: 138.32 kg

DRUGS (15)
  1. GLIPIZIDE [Concomitant]
     Dosage: 5 MG, 1X/DAY
  2. RANITIDINE [Concomitant]
     Dosage: 300 MG, 1X/DAY
  3. METFORMIN [Concomitant]
     Dosage: 1000 MG, 1X/DAY
  4. SUTENT [Suspect]
     Dosage: 37.5 MG, 1X/DAY
     Route: 048
     Dates: start: 20120529
  5. AMLODIPINE [Suspect]
     Indication: HYPERTENSION
  6. PROPRANOLOL [Concomitant]
     Dosage: 40 MG, 1X/DAY
  7. OMEPRAZOLE [Concomitant]
     Dosage: 20 MG, 1X/DAY
  8. LISINOPRIL [Concomitant]
     Dosage: 40 MG, 1X/DAY
  9. PRAZOSIN [Concomitant]
     Dosage: 5 MG, 1X/DAY
  10. VITAMIN D [Concomitant]
     Dosage: 2000 UNITS, 1X/DAY
  11. SIMVASTATIN [Concomitant]
     Dosage: 20 MG, 1X/DAY
  12. SUTENT [Suspect]
     Indication: HEPATIC CANCER METASTATIC
     Dosage: 25 MG, 1X/DAY
     Route: 048
     Dates: start: 20120401, end: 20120529
  13. ALPRAZOLAM [Concomitant]
     Dosage: 1 MG, 1X/DAY
  14. HYDROCHLOROTHIAZIDE [Concomitant]
     Dosage: 25 MG, 1X/DAY
  15. ASPIRIN [Concomitant]
     Dosage: 81 MG, 1X/DAY

REACTIONS (5)
  - ABDOMINAL PAIN UPPER [None]
  - HYPERTENSION [None]
  - DYSPHAGIA [None]
  - OESOPHAGEAL OBSTRUCTION [None]
  - DIARRHOEA [None]
